FAERS Safety Report 7156441-5 (Version None)
Quarter: 2010Q4

REPORT INFORMATION
  Report Type: 
  Country: None (occurrence: None)
  Receive Date: 20101214
  Receipt Date: 20101124
  Transmission Date: 20110411
  Serious: Yes (Hospitalization)
  Sender: FDA-Public Use
  Company Number: US-ROCHE-747306

PATIENT
  Sex: Female
  Weight: 73.1 kg

DRUGS (9)
  1. BEVACIZUMAB [Suspect]
     Dosage: UNK
     Route: 065
  2. BLINDED PLACEBO [Suspect]
     Dosage: 150 MG, QD
     Route: 048
     Dates: start: 20080822, end: 20100715
  3. BLINDED PLACEBO [Suspect]
     Dosage: 150 MG, QD
     Route: 048
     Dates: start: 20080822, end: 20100715
  4. BLINDED GDC-0449 [Suspect]
     Dosage: 150 MG, QD
     Route: 048
     Dates: start: 20080822, end: 20100715
  5. BLINDED GDC-0449 [Suspect]
     Dosage: 150 MG, QD
     Route: 048
     Dates: start: 20080822, end: 20100715
  6. FLUOROURACIL [Suspect]
     Route: 065
  7. LEUCOVORIN CALCIUM [Suspect]
     Dosage: UNK
     Route: 065
  8. LEUCOVORIN CALCIUM [Suspect]
     Route: 065
  9. OXALIPLATIN [Suspect]
     Dosage: UNK
     Route: 065

REACTIONS (1)
  - CHOLECYSTITIS ACUTE [None]
